FAERS Safety Report 5203919-7 (Version None)
Quarter: 2007Q1

REPORT INFORMATION
  Report Type: 
  Country: None (occurrence: None)
  Receive Date: 20070105
  Receipt Date: 20061219
  Transmission Date: 20070707
  Serious: Yes (Other)
  Sender: FDA-Public Use
  Company Number: 13617428

PATIENT
  Sex: Female

DRUGS (6)
  1. EMSAM [Suspect]
     Indication: DEPRESSION
     Dosage: TD
     Route: 062
     Dates: start: 20060916
  2. FENTANYL TRANSDERMAL SYSTEM [Concomitant]
  3. SEROQUEL [Concomitant]
  4. XANAX SR [Concomitant]
  5. ATRANE [Concomitant]
  6. NAVANE [Concomitant]

REACTIONS (2)
  - COELIAC DISEASE [None]
  - HEPATITIS [None]
